FAERS Safety Report 8787325 (Version 1)
Quarter: 2012Q4

REPORT INFORMATION
  Report Type: 
  Country: US (occurrence: US)
  Receive Date: 20120914
  Receipt Date: 20120914
  Transmission Date: 20130627
  Serious: No
  Sender: FDA-Public Use
  Company Number: US-VERTEX PHARMACEUTICAL INC.-AE-2012-010257

PATIENT

DRUGS (8)
  1. INCIVEK [Suspect]
     Indication: HEPATITIS C
     Route: 048
     Dates: start: 20120706
  2. RIBAVIRIN [Concomitant]
     Indication: HEPATITIS C
     Route: 048
     Dates: start: 20120706
  3. PEGASYS [Concomitant]
     Indication: HEPATITIS C
     Route: 058
     Dates: start: 20120706
  4. BUSPRIONE [Concomitant]
     Indication: DEPRESSION
     Route: 048
  5. CELEXA [Concomitant]
     Indication: DEPRESSION
     Route: 048
  6. TRAZODONE [Concomitant]
     Indication: DEPRESSION
     Route: 048
  7. OMEPRAZOLE [Concomitant]
     Route: 048
  8. VITAMIN D2 [Concomitant]

REACTIONS (1)
  - Inappropriate schedule of drug administration [Recovered/Resolved]
